FAERS Safety Report 11141147 (Version 1)
Quarter: 2015Q2

REPORT INFORMATION
  Report Type: Spontaneous
  Country: US (occurrence: None)
  Receive Date: 20150526
  Receipt Date: 20150526
  Transmission Date: 20150821
  Serious: No
  Sender: FDA-Public Use
  Company Number: None

PATIENT
  Age: 71 Year
  Sex: Female
  Weight: 99.79 kg

DRUGS (6)
  1. NAPROXEN. [Concomitant]
     Active Substance: NAPROXEN
  2. 1 A DAY VIT [Concomitant]
  3. VIT. D [Concomitant]
  4. PRAVASTATIN [Suspect]
     Active Substance: PRAVASTATIN\PRAVASTATIN SODIUM
     Indication: BLOOD CHOLESTEROL INCREASED
     Dosage: 20 MG?90 PILLS?1X DAY?MOUTH
     Route: 048
     Dates: start: 20150223, end: 201503
  5. VITAMIN B COMPLEX [Concomitant]
     Active Substance: CYANOCOBALAMIN\DEXPANTHENOL\NIACINAMIDE\PYRIDOXINE HYDROCHLORIDE\RIBOFLAVIN 5^-PHOSPHATE SODIUM\THIAMINE HYDROCHLORIDE\VITAMIN B COMPLEX
  6. ZOLOFT [Concomitant]
     Active Substance: SERTRALINE HYDROCHLORIDE

REACTIONS (5)
  - Gastrooesophageal reflux disease [None]
  - Myalgia [None]
  - Amnesia [None]
  - Dyspnoea [None]
  - Gait disturbance [None]

NARRATIVE: CASE EVENT DATE: 201503
